FAERS Safety Report 9308980 (Version 2)
Quarter: 2013Q3

REPORT INFORMATION
  Report Type: Report from Study
  Country: JP (occurrence: JP)
  Receive Date: 20130524
  Receipt Date: 20130917
  Transmission Date: 20140515
  Serious: Yes (Life-Threatening, Hospitalization, Other)
  Sender: FDA-Public Use
  Company Number: JP-GILEAD-2013-0075791

PATIENT
  Age: 73 Year
  Sex: Male

DRUGS (6)
  1. AMBRISENTAN [Suspect]
     Indication: PULMONARY ARTERIAL HYPERTENSION
     Dosage: 2.5MG PER DAY
     Route: 048
     Dates: start: 20130501, end: 20130510
  2. SAMSCA [Concomitant]
     Dosage: 15MG PER DAY
     Route: 048
  3. SAMSCA [Concomitant]
     Dosage: 15MG PER DAY
     Route: 048
  4. ALDACTONE A [Concomitant]
     Dosage: 50MG PER DAY
     Route: 048
  5. ALDACTONE A [Concomitant]
     Dosage: 50MG PER DAY
     Route: 048
  6. ADCIRCA [Concomitant]
     Indication: PULMONARY ARTERIAL HYPERTENSION
     Route: 048
     Dates: start: 20130206

REACTIONS (4)
  - Anuria [Recovered/Resolved]
  - Platelet count decreased [Not Recovered/Not Resolved]
  - Leukopenia [Recovered/Resolved]
  - Anaemia [Recovered/Resolved]
